FAERS Safety Report 6090965-7 (Version None)
Quarter: 2009Q1

REPORT INFORMATION
  Report Type: 
  Country: None (occurrence: None)
  Receive Date: 20090219
  Receipt Date: 20090219
  Transmission Date: 20090719
  Serious: Yes (Hospitalization)
  Sender: FDA-Public Use
  Company Number: None

PATIENT
  Age: 64 Year
  Sex: Male

DRUGS (1)
  1. SUCCINYLCHOLINE [Suspect]
     Indication: ANAESTHESIA
     Dates: start: 20081205, end: 20081205

REACTIONS (2)
  - HYPERTHERMIA MALIGNANT [None]
  - MUSCLE RIGIDITY [None]
